FAERS Safety Report 11155012 (Version 1)
Quarter: 2015Q2

REPORT INFORMATION
  Report Type: Spontaneous
  Country: PL (occurrence: PL)
  Receive Date: 20150602
  Receipt Date: 20150602
  Transmission Date: 20150821
  Serious: Yes (Other)
  Sender: FDA-Public Use
  Company Number: PL-TEVA-566022ISR

PATIENT
  Age: 55 Year
  Sex: Female
  Weight: 73 kg

DRUGS (18)
  1. KALIPOZ [Concomitant]
     Active Substance: POTASSIUM CHLORIDE
  2. NITRAZEPAM [Concomitant]
     Active Substance: NITRAZEPAM
  3. GABAPENTIN. [Suspect]
     Active Substance: GABAPENTIN
     Dosage: 300 MILLIGRAM DAILY;
     Route: 048
     Dates: start: 20121216
  4. GABAPENTIN. [Suspect]
     Active Substance: GABAPENTIN
     Dosage: 1 X 200 MG + 2 X 100 MG
     Route: 048
     Dates: start: 20121214
  5. PULMICORT TURBUHALER [Concomitant]
     Active Substance: BUDESONIDE
  6. STAVERAN [Concomitant]
  7. HYDROXYZINE [Concomitant]
     Active Substance: HYDROXYZINE\HYDROXYZINE HYDROCHLORIDE
  8. GABAPENTIN. [Suspect]
     Active Substance: GABAPENTIN
     Indication: SOFT TISSUE DISORDER
     Route: 048
     Dates: start: 20121210
  9. GABAPENTIN. [Suspect]
     Active Substance: GABAPENTIN
     Route: 048
     Dates: start: 20121212
  10. GABAPENTIN. [Suspect]
     Active Substance: GABAPENTIN
     Dosage: 2 X 200 MG + 1 X 100 MG
     Route: 048
     Dates: start: 20121213
  11. FLONIDAN [Concomitant]
     Active Substance: LORATADINE
  12. CAPTOPRIL. [Concomitant]
     Active Substance: CAPTOPRIL
  13. FUROSEMIDE. [Concomitant]
     Active Substance: FUROSEMIDE
  14. GABAPENTIN. [Suspect]
     Active Substance: GABAPENTIN
     Route: 048
     Dates: start: 20121211
  15. BUDERHIN [Concomitant]
  16. RUTINOSCORBIN [Concomitant]
  17. OMEPRAZOLE. [Concomitant]
     Active Substance: OMEPRAZOLE
  18. SEREVENT DISKUS [Concomitant]
     Active Substance: SALMETEROL XINAFOATE

REACTIONS (8)
  - Blood pressure increased [Unknown]
  - Dizziness [Unknown]
  - Balance disorder [Unknown]
  - Nausea [Unknown]
  - Dyspnoea [Unknown]
  - Alopecia [Unknown]
  - Heart rate increased [Unknown]
  - Retching [Unknown]

NARRATIVE: CASE EVENT DATE: 20121210
